FAERS Safety Report 4975184-7 (Version None)
Quarter: 2006Q2

REPORT INFORMATION
  Report Type: 
  Country: None (occurrence: None)
  Receive Date: 20060418
  Receipt Date: 20060403
  Transmission Date: 20061013
  Serious: Yes (Other)
  Sender: FDA-Public Use
  Company Number: ES-GLAXOSMITHKLINE-B0419993A

PATIENT
  Age: 50 Year
  Sex: Male

DRUGS (2)
  1. ZYNTABAC [Suspect]
     Dosage: 150MG PER DAY
     Route: 048
     Dates: start: 20060307, end: 20060331
  2. NIQUITIN [Suspect]
     Dosage: 14MG PER DAY
     Route: 061

REACTIONS (3)
  - BLINDNESS [None]
  - CATARACT [None]
  - VISION BLURRED [None]
